FAERS Safety Report 24162634 (Version 1)
Quarter: 2024Q3

REPORT INFORMATION
  Report Type: Spontaneous
  Country: US (occurrence: US)
  Receive Date: 20240801
  Receipt Date: 20240801
  Transmission Date: 20241016
  Serious: No
  Sender: GILEAD
  Company Number: US-GILEAD-2024-0682572

PATIENT
  Sex: Male

DRUGS (17)
  1. VEMLIDY [Suspect]
     Active Substance: TENOFOVIR ALAFENAMIDE FUMARATE
     Indication: Chronic hepatitis B
     Dosage: TAKE ONE TABLET BY MOUTH ONCE DAILY WITH FOOD
     Route: 048
  2. CALCITRIOL [Concomitant]
     Active Substance: CALCITRIOL
  3. ISOSORBIDE [Concomitant]
     Active Substance: ISOSORBIDE
  4. AMLODIPINE [Concomitant]
     Active Substance: AMLODIPINE BESYLATE
  5. NITROGLYCERIN [Concomitant]
     Active Substance: NITROGLYCERIN
  6. FUROSEMIDE [Concomitant]
     Active Substance: FUROSEMIDE
  7. RIVAROXABAN [Concomitant]
     Active Substance: RIVAROXABAN
  8. ALLOPURINOL [Concomitant]
     Active Substance: ALLOPURINOL
  9. CARVEDILOL [Concomitant]
     Active Substance: CARVEDILOL
  10. KERENDIA [Concomitant]
     Active Substance: FINERENONE
  11. ASPIRIN [Concomitant]
     Active Substance: ASPIRIN
  12. LOSARTAN [Concomitant]
     Active Substance: LOSARTAN
  13. VITAMIN D3 [Concomitant]
     Active Substance: CHOLECALCIFEROL
  14. VITAMIN C [Concomitant]
     Active Substance: ASCORBIC ACID
  15. HUMALOG [Concomitant]
     Active Substance: INSULIN LISPRO
  16. ATORVASTATIN [Concomitant]
     Active Substance: ATORVASTATIN
  17. BRILINTA [Concomitant]
     Active Substance: TICAGRELOR

REACTIONS (1)
  - Product use issue [Not Recovered/Not Resolved]
